FAERS Safety Report 20607696 (Version 1)
Quarter: 2022Q1

REPORT INFORMATION
  Report Type: Spontaneous
  Country: JP (occurrence: None)
  Receive Date: 20220317
  Receipt Date: 20220317
  Transmission Date: 20220423
  Serious: Yes (Other)
  Sender: FDA-Public Use
  Company Number: 2022A115462

PATIENT
  Sex: Female

DRUGS (1)
  1. TAGRISSO [Suspect]
     Active Substance: OSIMERTINIB
     Indication: Non-small cell lung cancer
     Dosage: IN THE MORNING
     Route: 048

REACTIONS (4)
  - Metastases to bone [Unknown]
  - Bone pain [Unknown]
  - Drug resistance [Unknown]
  - Product dose omission issue [Unknown]
